FAERS Safety Report 8812534 (Version 1)
Quarter: 2012Q4

REPORT INFORMATION
  Report Type: Report from Study
  Country: JP (occurrence: JP)
  Receive Date: 20120927
  Receipt Date: 20120927
  Transmission Date: 20130627
  Serious: Yes (Other)
  Sender: FDA-Public Use
  Company Number: JP-VERTEX PHARMACEUTICAL INC.-AE-2012-008896

PATIENT
  Age: 49 Year
  Sex: Male

DRUGS (13)
  1. VX-950 [Suspect]
     Indication: HEPATITIS C
     Dosage: 1500 mg, qd
     Route: 048
     Dates: start: 20120412, end: 20120606
  2. VX-950 [Suspect]
     Dosage: 1500 mg, qd
     Route: 048
     Dates: start: 20120621, end: 20120704
  3. RIBAVIRIN [Suspect]
     Indication: HEPATITIS C
     Dosage: 600 mg, qd
     Route: 048
     Dates: start: 20120412, end: 20120606
  4. RIBAVIRIN [Suspect]
     Dosage: 600 mg, qd
     Route: 048
     Dates: start: 20120621
  5. PEGINTERFERON ALFA-2B [Suspect]
     Indication: HEPATITIS C
     Dosage: 1 UNK, UNK
     Route: 058
     Dates: start: 20120412, end: 20120412
  6. PEGINTERFERON ALFA-2B [Suspect]
     Dosage: 40 UNK, UNK
     Route: 058
     Dates: start: 20120419
  7. PEGINTERFERON ALFA-2B [Suspect]
     Dosage: 50 UNK, UNK
     Route: 058
     Dates: start: 20120426
  8. PEGINTERFERON ALFA-2B [Suspect]
     Dosage: 1 UNK, UNK
     Route: 058
     Dates: end: 20120531
  9. PEGINTERFERON ALFA-2B [Suspect]
     Dosage: 1 UNK, UNK
     Route: 058
     Dates: start: 20120621
  10. METHYCOBAL [Concomitant]
     Dosage: 1500 ?g, qd
     Route: 048
     Dates: start: 20120419
  11. LAC-B [Concomitant]
     Dosage: 3 g, qd
     Route: 048
     Dates: start: 20120426
  12. MS ONSHIPPU [Concomitant]
     Dosage: UNK, qd
     Route: 061
     Dates: start: 20120502
  13. MYONAL                             /00287502/ [Concomitant]
     Dosage: 150 mg, qd
     Route: 048
     Dates: start: 20120510

REACTIONS (2)
  - Neutrophil count decreased [Not Recovered/Not Resolved]
  - Hypothyroidism [Not Recovered/Not Resolved]
